FAERS Safety Report 24307268 (Version 1)
Quarter: 2024Q3

REPORT INFORMATION
  Report Type: Spontaneous
  Country: US (occurrence: None)
  Receive Date: 20240910
  Receipt Date: 20240910
  Transmission Date: 20241017
  Serious: Yes (unspecified)
  Sender: Public
  Company Number: None

PATIENT
  Age: 65 Year
  Sex: Female
  Weight: 74.84 kg

DRUGS (3)
  1. RECLAST [Suspect]
     Active Substance: ZOLEDRONIC ACID
     Dosage: 1 TIME INFUSION  INTRAVENOUS
     Route: 042
     Dates: start: 20240723, end: 20240723
  2. CALCIUM [Concomitant]
     Active Substance: CALCIUM
  3. VITAMIN D3 [Concomitant]
     Active Substance: CHOLECALCIFEROL

REACTIONS (5)
  - Infusion related reaction [None]
  - Pyrexia [None]
  - Arthralgia [None]
  - Sciatica [None]
  - Dysstasia [None]

NARRATIVE: CASE EVENT DATE: 20240723
